FAERS Safety Report 9208907 (Version 1)
Quarter: 2013Q1

REPORT INFORMATION
  Report Type: Spontaneous
  Country: US (occurrence: None)
  Receive Date: 20120820
  Receipt Date: 20120820
  Transmission Date: 20140127
  Serious: Yes (Other)
  Sender: FDA-Public Use
  Company Number: 062331

PATIENT
  Sex: Female
  Weight: 76.2 kg

DRUGS (6)
  1. LACOSAMIDE [Suspect]
     Dates: start: 2011
  2. PLAVIX/01220701 [Concomitant]
  3. CADUET [Concomitant]
  4. ATACAND / 01349502 [Concomitant]
  5. HYDROCHLORTHIAZIDE [Concomitant]
  6. ASPIRIN / 00002701 [Concomitant]

REACTIONS (2)
  - Convulsion [None]
  - Anxiety [None]
